FAERS Safety Report 4816565-1 (Version None)
Quarter: 2005Q4

REPORT INFORMATION
  Report Type: 
  Country: None (occurrence: None)
  Receive Date: 20051031
  Receipt Date: 20051031
  Transmission Date: 20060501
  Serious: Yes (Hospitalization)
  Sender: FDA-Public Use
  Company Number: None

PATIENT
  Age: 59 Year
  Sex: Female
  Weight: 71.5 kg

DRUGS (9)
  1. GLEEVEC [Suspect]
     Indication: BREAST CANCER
     Dosage: 300 MG QID
     Dates: start: 20050920, end: 20051027
  2. XELODA [Suspect]
     Dosage: 750 MG/M2 BID 14/21 DAYS
  3. TRAZODONE HCL [Concomitant]
  4. PROPRANDOLOL [Concomitant]
  5. XANAX [Concomitant]
  6. HYDROCODONE [Concomitant]
  7. LEXAPRO [Concomitant]
  8. OXYCONTIN [Concomitant]
  9. OXYCODONE [Concomitant]

REACTIONS (2)
  - DIFFICULTY IN WALKING [None]
  - DYSPNOEA [None]
